FAERS Safety Report 10373543 (Version 2)
Quarter: 2014Q3

REPORT INFORMATION
  Report Type: Spontaneous
  Country: US (occurrence: US)
  Receive Date: 20140808
  Receipt Date: 20140915
  Transmission Date: 20150326
  Serious: Yes (Hospitalization, Other)
  Sender: FDA-Public Use
  Company Number: US-GILEAD-2014-0111290

PATIENT
  Age: 63 Year
  Sex: Male

DRUGS (2)
  1. SOVALDI [Suspect]
     Active Substance: SOFOSBUVIR
     Indication: HEPATITIS C
     Dosage: 400 MG, QD
     Route: 048
     Dates: start: 20140716, end: 20140816
  2. RIBAVIRIN. [Suspect]
     Active Substance: RIBAVIRIN
     Indication: HEPATITIS C
     Dosage: 1200 MG, QD
     Route: 048
     Dates: start: 20140716, end: 20140803

REACTIONS (7)
  - Vomiting [Recovered/Resolved]
  - Depression [Unknown]
  - Unevaluable event [Unknown]
  - Chromaturia [Recovered/Resolved]
  - Nausea [Recovered/Resolved]
  - Renal failure [Unknown]
  - Dehydration [Unknown]

NARRATIVE: CASE EVENT DATE: 201407
